FAERS Safety Report 4464803-X (Version None)
Quarter: 2004Q4

REPORT INFORMATION
  Report Type: 
  Country: None (occurrence: None)
  Receive Date: 20041004
  Receipt Date: 20030303
  Transmission Date: 20050328
  Serious: No
  Sender: FDA-Public Use
  Company Number: US-GLAXOSMITHKLINE-A0398634A

PATIENT
  Age: 62 Year
  Sex: Female

DRUGS (11)
  1. COREG [Suspect]
     Indication: ARRHYTHMIA
     Dosage: 1.56MG TWICE PER DAY
     Route: 048
     Dates: start: 19970101
  2. LASIX [Concomitant]
     Route: 048
  3. AMIODARONE HCL [Concomitant]
  4. DIGOXIN [Concomitant]
  5. POTASSIUM [Concomitant]
  6. DIOVAN [Concomitant]
  7. COUMADIN [Concomitant]
  8. ESTROGEN [Concomitant]
  9. COZAAR [Concomitant]
     Dosage: 25MG TWICE PER DAY
     Route: 048
  10. XANAX [Concomitant]
     Dosage: .25MG PER DAY
     Route: 048
  11. HYCODAN [Concomitant]
     Route: 048

REACTIONS (16)
  - ASTHENIA [None]
  - COUGH [None]
  - DIARRHOEA [None]
  - DIZZINESS [None]
  - DRY MOUTH [None]
  - EPISTAXIS [None]
  - FLUSHING [None]
  - FREQUENT BOWEL MOVEMENTS [None]
  - HYPOAESTHESIA [None]
  - ILL-DEFINED DISORDER [None]
  - NASAL CONGESTION [None]
  - NIGHT SWEATS [None]
  - PARAESTHESIA [None]
  - POLLAKIURIA [None]
  - THROAT TIGHTNESS [None]
  - TINNITUS [None]
